FAERS Safety Report 9788226 (Version 3)
Quarter: 2014Q1

REPORT INFORMATION
  Report Type: Report from Study
  Country: JP (occurrence: JP)
  Receive Date: 20131230
  Receipt Date: 20140227
  Transmission Date: 20141002
  Serious: Yes (Death, Other)
  Sender: FDA-Public Use
  Company Number: JP-TAKEDA-2013TJP003884

PATIENT
  Age: 86 Year
  Sex: Male
  Weight: 56 kg

DRUGS (5)
  1. ALOGLIPTIN [Suspect]
     Indication: TYPE 2 DIABETES MELLITUS
     Dosage: 12.5 MG, 1 DAYS
     Route: 048
     Dates: start: 20120529, end: 20130116
  2. AMARYL [Concomitant]
     Indication: TYPE 2 DIABETES MELLITUS
     Dosage: 0.5 MG, 1 DAYS
     Route: 048
  3. AMLODIN [Concomitant]
     Dosage: 5 MG, 1 DAYS
     Route: 048
  4. LASIX                              /00032601/ [Concomitant]
     Dosage: 40 MG, 1 DAYS
     Route: 048
  5. BAYASPIRIN [Concomitant]
     Dosage: 100 MG, 1 DAYS
     Route: 048

REACTIONS (3)
  - Pneumonia [Fatal]
  - Respiratory failure [Fatal]
  - Eating disorder [Recovering/Resolving]
